FAERS Safety Report 7674152-4 (Version None)
Quarter: 2011Q3

REPORT INFORMATION
  Report Type: 
  Country: None (occurrence: None)
  Receive Date: 20110810
  Receipt Date: 20110729
  Transmission Date: 20111222
  Serious: Yes (Other)
  Sender: FDA-Public Use
  Company Number: ES-JNJFOC-20110801378

PATIENT
  Age: 34 Year
  Sex: Male

DRUGS (2)
  1. INTELENCE [Suspect]
     Indication: HIV INFECTION
     Route: 048
     Dates: start: 20110706, end: 20110729
  2. TRUVADA [Concomitant]
     Indication: HIV INFECTION
     Dates: start: 20110706

REACTIONS (3)
  - HEADACHE [None]
  - PYREXIA [None]
  - RASH [None]
